FAERS Safety Report 20082225 (Version 1)
Quarter: 2021Q4

REPORT INFORMATION
  Report Type: Spontaneous
  Country: US (occurrence: US)
  Receive Date: 20211117
  Receipt Date: 20211117
  Transmission Date: 20220304
  Serious: No
  Sender: FDA-Public Use
  Company Number: US-ELI_LILLY_AND_COMPANY-US202111006702

PATIENT
  Sex: Female

DRUGS (1)
  1. TALTZ [Suspect]
     Active Substance: IXEKIZUMAB
     Indication: Product used for unknown indication
     Dosage: 80 MG, UNKNOWN
     Route: 065

REACTIONS (12)
  - Visual impairment [Unknown]
  - Dry eye [Unknown]
  - Eye pain [Unknown]
  - Sneezing [Unknown]
  - Cough [Unknown]
  - Paranasal sinus hypersecretion [Unknown]
  - Nasal congestion [Unknown]
  - Paranasal sinus hyposecretion [Unknown]
  - Headache [Unknown]
  - Fatigue [Unknown]
  - Nausea [Unknown]
  - Nasopharyngitis [Unknown]
